FAERS Safety Report 21297754 (Version 1)
Quarter: 2022Q3

REPORT INFORMATION
  Report Type: Report from Study
  Country: KR (occurrence: KR)
  Receive Date: 20220906
  Receipt Date: 20220906
  Transmission Date: 20221027
  Serious: Yes (Hospitalization, Other)
  Sender: FDA-Public Use
  Company Number: KR-GLAXOSMITHKLINE-KR2022GSK124574

PATIENT

DRUGS (9)
  1. FLUTICASONE FUROATE\UMECLIDINIUM BROMIDE\VILANTEROL TRIFENATATE [Suspect]
     Active Substance: FLUTICASONE FUROATE\UMECLIDINIUM BROMIDE\VILANTEROL TRIFENATATE
     Indication: Chronic obstructive pulmonary disease
     Dosage: UNK
     Route: 055
     Dates: start: 20220509
  2. SYNATURA [Concomitant]
     Indication: Productive cough
     Dosage: SINGLE 1, TID
     Route: 048
     Dates: start: 20220613
  3. PREDNISOLONE [Concomitant]
     Active Substance: PREDNISOLONE
     Indication: Pneumonia
     Dosage: SINGLE 1, BID
     Dates: start: 20220411, end: 20220418
  4. PRANLUKAST [Concomitant]
     Active Substance: PRANLUKAST
     Indication: Chronic obstructive pulmonary disease
     Dosage: SINGLE 1, BID
     Route: 048
     Dates: start: 20210707
  5. DOXOFYLLINE [Concomitant]
     Active Substance: DOXOFYLLINE
     Indication: Chronic obstructive pulmonary disease
     Dosage: SINGLE 1, BID
     Route: 048
     Dates: start: 20220803
  6. AVODUTA [Concomitant]
     Indication: Benign prostatic hyperplasia
     Dosage: UNK
     Route: 048
     Dates: start: 20220725
  7. AVODUTA [Concomitant]
     Indication: Urinary tract obstruction
  8. HARNAL [Concomitant]
     Active Substance: TAMSULOSIN HYDROCHLORIDE
     Indication: Benign prostatic hyperplasia
     Dosage: UNK
     Route: 048
     Dates: start: 20220725
  9. ZANAPAM [Concomitant]
     Indication: Anxiety disorder
     Dosage: UNK, TID
     Route: 048
     Dates: start: 20220408

REACTIONS (2)
  - Febrile neutropenia [Recovered/Resolved]
  - Dyspnoea [Recovering/Resolving]

NARRATIVE: CASE EVENT DATE: 20220817
